FAERS Safety Report 7610287-X (Version None)
Quarter: 2011Q3

REPORT INFORMATION
  Report Type: 
  Country: None (occurrence: None)
  Receive Date: 20110715
  Receipt Date: 20110704
  Transmission Date: 20111222
  Serious: Yes (Disabling, Other)
  Sender: FDA-Public Use
  Company Number: JP-SHIRE-SPV1-2011-00364

PATIENT
  Age: 46 Year
  Sex: Male

DRUGS (6)
  1. ONEALFA [Concomitant]
     Indication: HYPERCALCAEMIA
     Dosage: 0.5 IU, UNKNOWN
     Route: 048
     Dates: start: 20020309
  2. SENNOSIDE                          /00571901/ [Concomitant]
     Indication: CONSTIPATION
     Dosage: 14 MG, UNKNOWN
     Route: 048
     Dates: start: 20020309
  3. FOSRENOL [Suspect]
     Indication: HYPERPHOSPHATAEMIA
     Dosage: 750 MG, 1X/DAY:QD
     Route: 048
     Dates: start: 20110218, end: 20110228
  4. ALLOPURINOL [Concomitant]
     Indication: HYPERURICAEMIA
     Dosage: 200 MG, UNKNOWN
     Route: 048
     Dates: start: 20020309
  5. LENDORMIN [Concomitant]
     Indication: INSOMNIA
     Dosage: 0.25 MG, UNKNOWN
     Route: 048
     Dates: start: 20020309
  6. CALCIUM CARBONATE [Concomitant]
     Indication: HYPERPHOSPHATAEMIA
     Dosage: 6000 MG, UNKNOWN
     Route: 048
     Dates: start: 20020309

REACTIONS (2)
  - RETINAL HAEMORRHAGE [None]
  - EYE HAEMORRHAGE [None]
